FAERS Safety Report 5532384-5 (Version None)
Quarter: 2007Q4

REPORT INFORMATION
  Report Type: 
  Country: None (occurrence: None)
  Receive Date: 20071203
  Receipt Date: 20071127
  Transmission Date: 20080405
  Serious: Yes (Other)
  Sender: FDA-Public Use
  Company Number: GB-ROXANE LABORATORIES, INC-2007-DE-06979GD

PATIENT
  Age: 25 Year
  Sex: Female
  Weight: 69 kg

DRUGS (2)
  1. SERTRALINE [Suspect]
  2. IMPLANON [Suspect]
     Indication: CONTRACEPTION

REACTIONS (2)
  - DRUG INTERACTION [None]
  - ECTOPIC PREGNANCY [None]
